FAERS Safety Report 4944217-6 (Version None)
Quarter: 2006Q1

REPORT INFORMATION
  Report Type: 
  Country: None (occurrence: None)
  Receive Date: 20060315
  Receipt Date: 20050722
  Transmission Date: 20060701
  Serious: Yes (Hospitalization, Other)
  Sender: FDA-Public Use
  Company Number: 200516656GDDC

PATIENT
  Age: 64 Year
  Sex: Male
  Weight: 86 kg

DRUGS (10)
  1. DOCETAXEL [Suspect]
     Indication: PROSTATE CANCER
     Route: 042
     Dates: start: 20041221, end: 20050629
  2. ENOXAPARIN SODIUM [Concomitant]
     Dates: start: 20041222
  3. HYDROCORTISONE [Concomitant]
     Indication: PERICARDITIS
     Dates: start: 20050421
  4. METOPROLOL [Concomitant]
     Indication: TACHYCARDIA
     Dates: start: 20040604
  5. PROPAFENON [Concomitant]
     Indication: TACHYCARDIA
     Dates: start: 20050202
  6. PROPAFENON [Concomitant]
     Indication: PERICARDITIS
     Dates: start: 20050202
  7. OMEPRAZOLE [Concomitant]
     Indication: PROPHYLAXIS AGAINST GASTROINTESTINAL ULCER
     Dates: start: 20050203
  8. TERBINAFINE HCL [Concomitant]
     Indication: ONYCHOMYCOSIS
     Dates: start: 20050622
  9. FLUCONAZOLE [Concomitant]
     Route: 042
     Dates: start: 20050717
  10. FLUCONAZOLE [Concomitant]
     Dosage: DOSE: UNK
     Route: 048
     Dates: start: 20050726

REACTIONS (6)
  - ANOREXIA [None]
  - FATIGUE [None]
  - HYPONATRAEMIA [None]
  - LEUKOPENIA [None]
  - NEUTROPENIA [None]
  - ORAL INTAKE REDUCED [None]
